FAERS Safety Report 7459457-4 (Version None)
Quarter: 2011Q2

REPORT INFORMATION
  Report Type: 
  Country: None (occurrence: None)
  Receive Date: 20110504
  Receipt Date: 20110504
  Transmission Date: 20111010
  Serious: Yes (Disabling, Other)
  Sender: FDA-Public Use
  Company Number: None

PATIENT
  Age: 23 Year
  Sex: Male
  Weight: 113.3993 kg

DRUGS (1)
  1. ASTEPRO [Suspect]
     Indication: RHINITIS
     Dosage: 2 SPRAYS PER NOSTRIL TWICE DAILY NASAL
     Route: 045
     Dates: start: 20110430, end: 20110501

REACTIONS (1)
  - TINNITUS [None]
